FAERS Safety Report 15222099 (Version 2)
Quarter: 2018Q4

REPORT INFORMATION
  Report Type: Spontaneous
  Country: US (occurrence: US)
  Receive Date: 20180731
  Receipt Date: 20181115
  Transmission Date: 20190204
  Serious: No
  Sender: FDA-Public Use
  Company Number: US-PFIZER INC-2018307106

PATIENT
  Age: 54 Year
  Sex: Male
  Weight: 98 kg

DRUGS (1)
  1. LYRICA [Suspect]
     Active Substance: PREGABALIN
     Indication: NEUROPATHY PERIPHERAL
     Dosage: 150 MG, 3X/DAY
     Dates: start: 2002, end: 201806

REACTIONS (6)
  - Gait inability [Unknown]
  - Fall [Unknown]
  - Vertigo [Not Recovered/Not Resolved]
  - Chest pain [Unknown]
  - Fibromyalgia [Unknown]
  - Swelling [Unknown]
